FAERS Safety Report 11286156 (Version 1)
Quarter: 2015Q3

REPORT INFORMATION
  Report Type: Spontaneous
  Country: US (occurrence: US)
  Receive Date: 20150721
  Receipt Date: 20150721
  Transmission Date: 20151125
  Serious: No
  Sender: FDA-Public Use
  Company Number: US-UNITED THERAPEUTICS-UNT-2014-011999

PATIENT
  Sex: Female
  Weight: 112.93 kg

DRUGS (1)
  1. TYVASO [Suspect]
     Active Substance: TREPROSTINIL
     Indication: PULMONARY ARTERIAL HYPERTENSION
     Dosage: 18-54 MICROGRAMS, QID
     Dates: start: 20141119, end: 201411

REACTIONS (7)
  - Headache [Unknown]
  - Rash pruritic [Unknown]
  - Adverse drug reaction [Unknown]
  - Therapy cessation [Unknown]
  - Burning sensation [Not Recovered/Not Resolved]
  - Chest pain [Unknown]
  - Cough [Not Recovered/Not Resolved]

NARRATIVE: CASE EVENT DATE: 2014
